FAERS Safety Report 12716726 (Version 2)
Quarter: 2016Q4

REPORT INFORMATION
  Report Type: Report from Study
  Country: CA (occurrence: CA)
  Receive Date: 20160906
  Receipt Date: 20161003
  Transmission Date: 20170207
  Serious: Yes (Other)
  Sender: FDA-Public Use
  Company Number: CA-REGENERON PHARMACEUTICALS, INC.-2016-21113

PATIENT

DRUGS (3)
  1. EYLEA [Suspect]
     Active Substance: AFLIBERCEPT
     Dosage: UNK
     Route: 031
  2. EYLEA [Suspect]
     Active Substance: AFLIBERCEPT
     Indication: DIABETIC RETINAL OEDEMA
     Dosage: 1 DF, ONCE
     Route: 031
     Dates: start: 20160818, end: 20160818
  3. EYLEA [Suspect]
     Active Substance: AFLIBERCEPT
     Dosage: 1 DF, ONCE
     Route: 031
     Dates: start: 20160921, end: 20160921

REACTIONS (6)
  - Fear of injection [Unknown]
  - Asthenopia [Unknown]
  - Visual impairment [Unknown]
  - Photophobia [Unknown]
  - Blindness transient [Unknown]
  - Memory impairment [Unknown]

NARRATIVE: CASE EVENT DATE: 20160921
